FAERS Safety Report 12576053 (Version 1)
Quarter: 2016Q3

REPORT INFORMATION
  Report Type: Report from Study
  Country: TR (occurrence: TR)
  Receive Date: 20160720
  Receipt Date: 20160720
  Transmission Date: 20161109
  Serious: Yes (Death)
  Sender: FDA-Public Use
  Company Number: PHHY2016TR098928

PATIENT

DRUGS (1)
  1. LDK378 [Suspect]
     Active Substance: CERITINIB
     Indication: PRODUCT USED FOR UNKNOWN INDICATION
     Route: 065

REACTIONS (1)
  - Death [Fatal]
